FAERS Safety Report 4854697-2 (Version None)
Quarter: 2005Q4

REPORT INFORMATION
  Report Type: 
  Country: None (occurrence: None)
  Receive Date: 20051214
  Receipt Date: 20051214
  Transmission Date: 20060501
  Serious: Yes (Other)
  Sender: FDA-Public Use
  Company Number: None

PATIENT
  Age: 23 Year
  Sex: Male
  Weight: 63.5036 kg

DRUGS (1)
  1. ALDARA [Suspect]
     Indication: CONDYLOMA ACUMINATUM
     Dosage: .05G  EVERY OTHER DAY  TOP
     Route: 061
     Dates: start: 20051126, end: 20051213

REACTIONS (10)
  - APPLICATION SITE REACTION [None]
  - BEDRIDDEN [None]
  - BLISTER [None]
  - DECREASED ACTIVITY [None]
  - DISCOMFORT [None]
  - GENITAL ERYTHEMA [None]
  - PAIN [None]
  - PRURITUS [None]
  - SKIN EXFOLIATION [None]
  - SKIN IRRITATION [None]
